FAERS Safety Report 4515097-8 (Version None)
Quarter: 2004Q4

REPORT INFORMATION
  Report Type: 
  Country: None (occurrence: None)
  Receive Date: 20041201
  Receipt Date: 20041118
  Transmission Date: 20050328
  Serious: Yes (Hospitalization, Disabling)
  Sender: FDA-Public Use
  Company Number: PHBS2004GB15761

PATIENT
  Age: 60 Year
  Sex: Female
  Weight: 95 kg

DRUGS (11)
  1. CARBAMAZEPINE [Suspect]
     Indication: SUNCT SYNDROME
     Dosage: 300 MG/DAY
     Route: 065
  2. CARBAMAZEPINE [Suspect]
     Dosage: 700 MG/DAY
     Route: 065
  3. CARBAMAZEPINE [Suspect]
     Dosage: 800 MG/DAY
     Route: 065
  4. CARBAMAZEPINE [Suspect]
     Dosage: 200 MG/DAY
     Route: 065
  5. CARBAMAZEPINE [Suspect]
     Dosage: 400 MG/DAY
     Route: 065
  6. PHENYTOIN [Concomitant]
     Dosage: 200 MG/DAY
     Route: 065
  7. LIDOCAINE [Concomitant]
     Dosage: UNK, UNK
     Route: 042
  8. TOPIRMATE [Concomitant]
     Dosage: 25 MG/DAY
     Route: 065
  9. TOPIRMATE [Concomitant]
     Dosage: 75 MG, BID
     Route: 065
  10. TOPIRMATE [Concomitant]
     Dosage: 150 MG, BID
     Route: 065
  11. LISINOPRIL [Concomitant]
     Dosage: 5 MG/DAY
     Route: 065

REACTIONS (10)
  - ATAXIA [None]
  - DRUG INEFFECTIVE [None]
  - HEADACHE [None]
  - HYPERSOMNIA [None]
  - MARKEDLY REDUCED DIETARY INTAKE [None]
  - NAUSEA [None]
  - PAIN [None]
  - SPEECH DISORDER [None]
  - SUNCT SYNDROME [None]
  - VOMITING [None]
